FAERS Safety Report 6527818-3 (Version None)
Quarter: 2009Q4

REPORT INFORMATION
  Report Type: 
  Country: None (occurrence: None)
  Receive Date: 20091230
  Receipt Date: 20091221
  Transmission Date: 20100525
  Serious: Yes (Hospitalization)
  Sender: FDA-Public Use
  Company Number: 1-21125681

PATIENT
  Age: 48 Year
  Sex: Female

DRUGS (2)
  1. TRAZODONE HCL [Suspect]
     Indication: DEPRESSION
     Dosage: 200 MG PER DAY, ORAL
     Route: 048
  2. VENLAFAXINE [Suspect]
     Indication: DEPRESSION
     Dosage: 75 MG PER DAY, ORAL
     Route: 048

REACTIONS (6)
  - ACUTE HEPATIC FAILURE [None]
  - ENCEPHALOPATHY [None]
  - HEPATITIS ACUTE [None]
  - HEPATOTOXICITY [None]
  - INTERNATIONAL NORMALISED RATIO INCREASED [None]
  - LIVER TRANSPLANT [None]
